FAERS Safety Report 16897097 (Version 2)
Quarter: 2020Q2

REPORT INFORMATION
  Report Type: Spontaneous
  Country: PT (occurrence: PT)
  Receive Date: 20191009
  Receipt Date: 20200609
  Transmission Date: 20200713
  Serious: Yes (Life-Threatening, Hospitalization)
  Sender: FDA-Public Use
  Company Number: PT-CHEPLA-C20192450

PATIENT
  Age: 48 Year
  Sex: Female
  Weight: 77 kg

DRUGS (14)
  1. METFORMIN [Interacting]
     Active Substance: METFORMIN HYDROCHLORIDE
     Indication: WEIGHT DECREASED
     Dosage: 200 MG, TWO CAPSULES PER DAY
     Route: 065
  2. PHENOLPHTHALEIN [Interacting]
     Active Substance: PHENOLPHTHALEIN
     Indication: WEIGHT DECREASED
     Dosage: 80 MG, TWO CAPSULES PER DAY
     Route: 065
  3. FUROSEMIDE. [Interacting]
     Active Substance: FUROSEMIDE
     Indication: WEIGHT DECREASED
     Dosage: 40 MG, TWO CAPSULES PER DAY
     Route: 065
  4. CENTELLA ASIATICA [Interacting]
     Active Substance: CENTELLA ASIATICA WHOLE
     Indication: WEIGHT DECREASED
     Dosage: 200 MG, TWO CAPSULES PER DAY
     Route: 065
  5. GESTODENE [Interacting]
     Active Substance: GESTODENE
     Indication: CONTRACEPTION
     Route: 048
  6. TOPIRAMATE. [Interacting]
     Active Substance: TOPIRAMATE
     Indication: WEIGHT DECREASED
     Dosage: 10 MG, TWO CAPSULES PER DAY
     Route: 065
  7. CASCARA SAGRADA [Interacting]
     Active Substance: FRANGULA PURSHIANA BARK
     Indication: WEIGHT DECREASED
     Dosage: 40 MG, TWO CAPSULES PER DAY
     Route: 065
  8. BUPROPION. [Interacting]
     Active Substance: BUPROPION
     Indication: WEIGHT DECREASED
     Dosage: 100 MG, TWO CAPSULES PER DAY
     Route: 048
     Dates: start: 201708, end: 201804
  9. FLECAINIDE [Concomitant]
     Active Substance: FLECAINIDE
     Indication: VENTRICULAR ARRHYTHMIA
     Dosage: 100 MG ONCE A DAY
     Route: 048
  10. ETHINYLESTRADIOL [Interacting]
     Active Substance: ETHINYL ESTRADIOL
     Indication: CONTRACEPTION
     Route: 048
  11. CHROMIUM PICOLINATE [Interacting]
     Active Substance: CHROMIUM PICOLINATE
     Indication: WEIGHT DECREASED
     Dosage: 200 MCG, TWO CAPSULES PER DAY
     Route: 048
  12. ORLISTAT. [Suspect]
     Active Substance: ORLISTAT
     Indication: WEIGHT DECREASED
     Dosage: 50 MG, TWO CAPSULES PER DAY
     Route: 065
  13. CHLORDIAZEPOXIDE. [Interacting]
     Active Substance: CHLORDIAZEPOXIDE
     Indication: WEIGHT DECREASED
     Dosage: 10MG, TWO CAPSULES PER DAY
     Route: 065
  14. SENNA GLYCOSIDES [Interacting]
     Active Substance: HERBALS\SENNOSIDES
     Indication: WEIGHT DECREASED
     Dosage: 20 MG, TWO CAPSULES PER DAY
     Route: 065

REACTIONS (5)
  - Speech disorder [Recovered/Resolved]
  - Bradyphrenia [Recovered/Resolved]
  - Disorientation [Recovered/Resolved]
  - Cerebral venous thrombosis [Recovered/Resolved]
  - Thalamic infarction [Recovered/Resolved]
